FAERS Safety Report 4532739-1 (Version None)
Quarter: 2004Q4

REPORT INFORMATION
  Report Type: 
  Country: None (occurrence: None)
  Receive Date: 20041206
  Receipt Date: 20040930
  Transmission Date: 20050328
  Serious: No
  Sender: FDA-Public Use
  Company Number: USA040979806

PATIENT
  Sex: Male

DRUGS (2)
  1. CYMBALTA [Suspect]
     Indication: DEPRESSION
     Dosage: 20 MG/1 IN THE MORNING
     Dates: start: 20040924
  2. RITALIN [Concomitant]

REACTIONS (2)
  - DYSPNOEA [None]
  - HYPERTENSION [None]
